FAERS Safety Report 24585458 (Version 1)
Quarter: 2024Q4

REPORT INFORMATION
  Report Type: Spontaneous
  Country: US (occurrence: US)
  Receive Date: 20241106
  Receipt Date: 20241106
  Transmission Date: 20250115
  Serious: Yes (Life-Threatening, Other)
  Sender: BAYER HEALTHCARE LLC
  Company Number: US-BAYER-2024A157997

PATIENT

DRUGS (1)
  1. ALKA-SELTZER PLUS NOS [Suspect]
     Active Substance: UNSPECIFIED INGREDIENT
     Route: 048

REACTIONS (1)
  - Choking [None]
